FAERS Safety Report 21054870 (Version 3)
Quarter: 2022Q3

REPORT INFORMATION
  Report Type: Spontaneous
  Country: AU (occurrence: AU)
  Receive Date: 20220707
  Receipt Date: 20220729
  Transmission Date: 20221027
  Serious: Yes (Hospitalization, Other)
  Sender: FDA-Public Use
  Company Number: AU-TEVA-2022-AU-2052403

PATIENT
  Age: 70 Year
  Sex: Male

DRUGS (2)
  1. IMATINIB [Suspect]
     Active Substance: IMATINIB
     Indication: Chronic myeloid leukaemia
     Route: 065
  2. DASATINIB [Suspect]
     Active Substance: DASATINIB
     Indication: Chronic myeloid leukaemia
     Dosage: 100 MILLIGRAM DAILY;
     Route: 065

REACTIONS (6)
  - Drug resistance [Unknown]
  - Endocarditis [Recovered/Resolved]
  - Enterococcal infection [Recovered/Resolved]
  - Pleural effusion [Unknown]
  - Aortic valve incompetence [Unknown]
  - Cardiac valve abscess [Unknown]

NARRATIVE: CASE EVENT DATE: 20190101
